FAERS Safety Report 9657272 (Version 1)
Quarter: 2013Q4

REPORT INFORMATION
  Report Type: Spontaneous
  Country: BR (occurrence: BR)
  Receive Date: 20131030
  Receipt Date: 20131030
  Transmission Date: 20140711
  Serious: Yes (Hospitalization, Other)
  Sender: FDA-Public Use
  Company Number: BR-009507513-1310BRA010405

PATIENT
  Sex: Female
  Weight: 50 kg

DRUGS (2)
  1. HYZAAR [Suspect]
     Indication: HYPERTENSION
     Dosage: UNK, QAM
     Route: 048
  2. ASPIRIN [Concomitant]
     Indication: ANTICOAGULANT THERAPY
     Dosage: UNK, QD
     Route: 048

REACTIONS (10)
  - Limb operation [Recovered/Resolved]
  - Skin graft [Unknown]
  - Catheterisation venous [Unknown]
  - Venous thrombosis limb [Unknown]
  - Wound [Unknown]
  - Impaired healing [Unknown]
  - Blood pressure inadequately controlled [Recovered/Resolved]
  - Intraocular pressure test abnormal [Recovered/Resolved]
  - Eye pruritus [Not Recovered/Not Resolved]
  - Eye irritation [Not Recovered/Not Resolved]
